FAERS Safety Report 22097357 (Version 1)
Quarter: 2023Q1

REPORT INFORMATION
  Report Type: Spontaneous
  Country: US (occurrence: US)
  Receive Date: 20230315
  Receipt Date: 20230315
  Transmission Date: 20230417
  Serious: Yes (Life-Threatening, Other)
  Sender: FDA-Public Use
  Company Number: US-CATALYSTPHARMACEUTICALPARTNERS-2021-42

PATIENT
  Age: 78 Year
  Sex: Male

DRUGS (3)
  1. RUZURGI [Suspect]
     Active Substance: AMIFAMPRIDINE
     Indication: Product used for unknown indication
     Dosage: 1 TABLET EVERY 3 MONTHS (5 TIMES DAILY)
     Route: 048
     Dates: start: 20200404
  2. PREDNISONE [Concomitant]
     Active Substance: PREDNISONE
     Indication: Product used for unknown indication
     Dosage: UNK
  3. INSULIN NOS [Concomitant]
     Active Substance: INSULIN NOS
     Indication: Product used for unknown indication
     Dosage: UNK

REACTIONS (1)
  - Neoplasm [Not Recovered/Not Resolved]

NARRATIVE: CASE EVENT DATE: 20210512
